FAERS Safety Report 12297931 (Version 1)
Quarter: 2016Q2

REPORT INFORMATION
  Report Type: Spontaneous
  Country: US (occurrence: US)
  Receive Date: 20160422
  Receipt Date: 20160422
  Transmission Date: 20160815
  Serious: No
  Sender: FDA-Public Use
  Company Number: US-PFIZER INC-2016219233

PATIENT
  Age: 46 Year
  Sex: Female
  Weight: 34 kg

DRUGS (2)
  1. ESTRING [Suspect]
     Active Substance: ESTRADIOL
     Indication: MENOPAUSE
  2. ESTRADIOL. [Concomitant]
     Active Substance: ESTRADIOL
     Dosage: 6 MG, DAILY
     Route: 048

REACTIONS (2)
  - Drug effect incomplete [Unknown]
  - Product quality issue [Unknown]
